FAERS Safety Report 11273820 (Version 1)
Quarter: 2015Q2

REPORT INFORMATION
  Report Type: Spontaneous
  Country: US (occurrence: None)
  Receive Date: 20150625
  Receipt Date: 20150625
  Transmission Date: 20150821
  Serious: No
  Sender: FDA-Public Use
  Company Number: A-US2015-114591

PATIENT
  Age: 23 Year
  Sex: Male

DRUGS (3)
  1. VELETRI [Suspect]
     Active Substance: EPOPROSTENOL
     Indication: PULMONARY HYPERTENSION
     Dosage: 8 NG/KG, PER MIN, INTRAVENOUS
     Route: 042
     Dates: start: 20150123
  2. ADCIRCA [Concomitant]
     Active Substance: TADALAFIL
  3. OPSUMIT [Suspect]
     Active Substance: MACITENTAN
     Indication: PULMONARY HYPERTENSION
     Route: 048

REACTIONS (10)
  - Eye swelling [None]
  - Seasonal allergy [None]
  - Sinusitis [None]
  - Sinus congestion [None]
  - Constipation [None]
  - Nausea [None]
  - Nasal discharge discolouration [None]
  - Swelling face [None]
  - Headache [None]
  - Fatigue [None]
